FAERS Safety Report 9340341 (Version 1)
Quarter: 2013Q2

REPORT INFORMATION
  Report Type: Report from Study
  Country: US (occurrence: US)
  Receive Date: 20130610
  Receipt Date: 20130610
  Transmission Date: 20140414
  Serious: Yes (Hospitalization)
  Sender: FDA-Public Use
  Company Number: US-BRISTOL-MYERS SQUIBB COMPANY-14601710

PATIENT
  Age: 52 Year
  Sex: Male

DRUGS (1)
  1. IPILIMUMAB [Suspect]
     Indication: MALIGNANT MELANOMA
     Dosage: INTERRUPTED ON 13MAR08.
     Route: 042
     Dates: start: 20080131

REACTIONS (1)
  - Diarrhoea [Recovered/Resolved]
